FAERS Safety Report 9825849 (Version 1)
Quarter: 2013Q4

REPORT INFORMATION
  Report Type: Spontaneous
  Country: US (occurrence: None)
  Receive Date: 20131104
  Receipt Date: 20131104
  Transmission Date: 20140711
  Serious: No
  Sender: FDA-Public Use
  Company Number: 1000023182

PATIENT
  Age: 85 Year
  Sex: Male

DRUGS (4)
  1. DALIRESP [Suspect]
     Indication: EMPHYSEMA
     Route: 048
     Dates: start: 20110803, end: 20110808
  2. DALIRESP [Suspect]
     Indication: BRONCHITIS CHRONIC
     Route: 048
     Dates: start: 20110803, end: 20110808
  3. SYMBICORT (BUDESONIDE W/FORMOTEROL FUMARATE) (BUDESONIDE W/FORMOTEROL FUMARATE) [Concomitant]
  4. SPIRIVA (TIOTROPIUM BROMIDE (TIOTROPIUM BROMIDE) [Concomitant]

REACTIONS (3)
  - Abdominal pain [None]
  - Diarrhoea [None]
  - Nausea [None]
